FAERS Safety Report 5037160-8 (Version None)
Quarter: 2006Q2

REPORT INFORMATION
  Report Type: 
  Country: None (occurrence: None)
  Receive Date: 20060623
  Receipt Date: 20060607
  Transmission Date: 20061013
  Serious: Yes (Hospitalization)
  Sender: FDA-Public Use
  Company Number: FR200606001521

PATIENT
  Age: 73 Year
  Sex: Male
  Weight: 76 kg

DRUGS (8)
  1. PROZAC [Suspect]
     Dosage: 20 MG, DAILY (1/D), ORAL
     Route: 048
  2. CORVASAL (MOLSIDOMINE) [Concomitant]
  3. TAXOL [Concomitant]
  4. TARCEVA /USA/ (ERLOTINIB) [Concomitant]
  5. PRAVASTATIN [Concomitant]
  6. CARBOPLATIN [Concomitant]
  7. IKOREL (NICORANDIL) [Concomitant]
  8. BISOPROLOL FUMARATE [Concomitant]

REACTIONS (10)
  - ASTHENIA [None]
  - BLOOD PH INCREASED [None]
  - DIARRHOEA [None]
  - DIZZINESS [None]
  - DRUG TOLERANCE DECREASED [None]
  - DYSPNOEA EXERTIONAL [None]
  - GASTROINTESTINAL DISORDER [None]
  - HYPOCAPNIA [None]
  - HYPOXIA [None]
  - INTERSTITIAL LUNG DISEASE [None]
